FAERS Safety Report 22655361 (Version 1)
Quarter: 2023Q2

REPORT INFORMATION
  Report Type: Spontaneous
  Country: US (occurrence: US)
  Receive Date: 20230629
  Receipt Date: 20230629
  Transmission Date: 20230721
  Serious: No
  Sender: FDA-Public Use
  Company Number: US-PERRIGO-22US012492

PATIENT
  Age: 75 Year
  Sex: Female
  Weight: 65.488 kg

DRUGS (8)
  1. MICONAZOLE 1 [Suspect]
     Active Substance: MICONAZOLE NITRATE
     Indication: Vulvovaginal mycotic infection
     Dosage: 1200 MG, SINGLE
     Route: 067
     Dates: start: 20220916, end: 20220916
  2. ZINC [Concomitant]
     Active Substance: ZINC
     Indication: Supplementation therapy
     Dosage: UNK
     Route: 065
  3. MELATONIN [Concomitant]
     Active Substance: MELATONIN
     Indication: Insomnia
     Dosage: UNK
     Route: 065
  4. VITAMIN D NOS [Concomitant]
     Active Substance: VITAMIN D NOS
     Indication: Vitamin D deficiency
     Dosage: UNK
     Route: 065
  5. MAGNESIUM CITRATE MALATE [Concomitant]
     Indication: Blood magnesium decreased
     Dosage: UNK
     Route: 065
  6. FISH OIL [FISH OIL;VITAMIN E NOS] [Concomitant]
     Indication: Supplementation therapy
     Dosage: UNK
     Route: 065
  7. GINKGO [Concomitant]
     Active Substance: GINKGO
     Indication: Routine health maintenance
     Dosage: UNK
     Route: 065
     Dates: start: 2002
  8. OLEA EUROPAEA LEAF [Concomitant]
     Active Substance: OLEA EUROPAEA LEAF
     Indication: Prophylaxis
     Dosage: UNK
     Route: 065
     Dates: start: 2002

REACTIONS (1)
  - Drug ineffective [Unknown]

NARRATIVE: CASE EVENT DATE: 20220916
